FAERS Safety Report 8394561-8 (Version None)
Quarter: 2012Q2

REPORT INFORMATION
  Report Type: 
  Country: None (occurrence: None)
  Receive Date: 20120530
  Receipt Date: 20120529
  Transmission Date: 20120825
  Serious: Yes (Other)
  Sender: FDA-Public Use
  Company Number: PHEH2012US009974

PATIENT
  Sex: Female
  Weight: 65 kg

DRUGS (2)
  1. CARBAMAZEPINE [Suspect]
     Indication: EPILEPSY
     Dosage: 200 MG, UNK
     Route: 048
  2. TOPIRAMATE [Concomitant]

REACTIONS (3)
  - VISION BLURRED [None]
  - AMNESIA [None]
  - CONVULSION [None]
